FAERS Safety Report 10237998 (Version 1)
Quarter: 2014Q2

REPORT INFORMATION
  Report Type: Spontaneous
  Country: US (occurrence: US)
  Receive Date: 20140616
  Receipt Date: 20140616
  Transmission Date: 20141212
  Serious: No
  Sender: FDA-Public Use
  Company Number: US-BIOGENIDEC-2014BI053006

PATIENT
  Age: 61 Year
  Sex: Female

DRUGS (4)
  1. TECFIDERA [Suspect]
     Indication: MULTIPLE SCLEROSIS
     Route: 048
     Dates: start: 20130827
  2. FIORINAL [Concomitant]
  3. IMITREX [Concomitant]
  4. LIPITOR [Concomitant]

REACTIONS (3)
  - Migraine [Unknown]
  - Presyncope [Unknown]
  - Dyspnoea [Unknown]
